FAERS Safety Report 6023586-2 (Version None)
Quarter: 2008Q4

REPORT INFORMATION
  Report Type: 
  Country: None (occurrence: None)
  Receive Date: 20081222
  Receipt Date: 20080925
  Transmission Date: 20090506
  Serious: No
  Sender: FDA-Public Use
  Company Number: SPV1-2008-02073

PATIENT
  Sex: Female

DRUGS (2)
  1. VYVANSE [Suspect]
  2. ADDERALL 10 [Concomitant]

REACTIONS (2)
  - ASTHENIA [None]
  - MALAISE [None]
